FAERS Safety Report 25453850 (Version 1)
Quarter: 2025Q2

REPORT INFORMATION
  Report Type: Spontaneous
  Country: CA (occurrence: CA)
  Receive Date: 20250619
  Receipt Date: 20250619
  Transmission Date: 20250717
  Serious: Yes (Other)
  Sender: ALEXION PHARMACEUTICALS
  Company Number: CA-HALEON-2246747

PATIENT
  Age: 41 Year

DRUGS (112)
  1. NEXIUM [Suspect]
     Active Substance: ESOMEPRAZOLE MAGNESIUM
  2. ACETAMINOPHEN [Suspect]
     Active Substance: ACETAMINOPHEN
     Indication: Product used for unknown indication
     Route: 065
  3. AMOXICILLIN TRIHYDRATE [Suspect]
     Active Substance: AMOXICILLIN
     Indication: Product used for unknown indication
     Route: 065
  4. AMOXICILLIN TRIHYDRATE [Suspect]
     Active Substance: AMOXICILLIN
  5. DEXAMETHASONE [Suspect]
     Active Substance: DEXAMETHASONE
     Indication: Migraine
  6. DEXAMETHASONE [Suspect]
     Active Substance: DEXAMETHASONE
  7. DULOXETINE HYDROCHLORIDE [Suspect]
     Active Substance: DULOXETINE HYDROCHLORIDE
     Indication: Migraine
     Route: 065
  8. ESCITALOPRAM OXALATE [Suspect]
     Active Substance: ESCITALOPRAM OXALATE
     Indication: Migraine
     Route: 065
  9. FERROUS FUMARATE [Concomitant]
     Active Substance: FERROUS FUMARATE
     Indication: Product used for unknown indication
  10. FLUCONAZOLE [Suspect]
     Active Substance: FLUCONAZOLE
     Indication: Migraine
     Route: 065
  11. FLUOXETINE HYDROCHLORIDE [Concomitant]
     Active Substance: FLUOXETINE HYDROCHLORIDE
     Indication: Product used for unknown indication
  12. FLUTICASONE [Concomitant]
     Active Substance: FLUTICASONE
     Indication: Product used for unknown indication
  13. FROVATRIPTAN SUCCINATE [Concomitant]
     Active Substance: FROVATRIPTAN SUCCINATE
     Indication: Product used for unknown indication
  14. LANSOPRAZOLE [Suspect]
     Active Substance: LANSOPRAZOLE
     Indication: Migraine
     Route: 065
  15. LISINOPRIL [Suspect]
     Active Substance: LISINOPRIL
     Indication: Migraine
  16. MOMETASONE FUROATE [Suspect]
     Active Substance: MOMETASONE FUROATE
     Indication: Product used for unknown indication
     Route: 065
  17. MOMETASONE FUROATE [Suspect]
     Active Substance: MOMETASONE FUROATE
     Indication: Migraine
  18. MOMETASONE FUROATE [Suspect]
     Active Substance: MOMETASONE FUROATE
  19. MORPHINE SULFATE [Concomitant]
     Active Substance: MORPHINE SULFATE
     Indication: Product used for unknown indication
  20. BOTULINUM TOXIN TYPE A [Suspect]
     Active Substance: BOTULINUM TOXIN TYPE A
     Indication: Product used for unknown indication
     Route: 065
  21. BOTULINUM TOXIN TYPE A [Suspect]
     Active Substance: BOTULINUM TOXIN TYPE A
  22. BOTULINUM TOXIN TYPE A [Suspect]
     Active Substance: BOTULINUM TOXIN TYPE A
  23. BOTULINUM TOXIN TYPE A [Suspect]
     Active Substance: BOTULINUM TOXIN TYPE A
  24. BOTULINUM TOXIN TYPE A [Suspect]
     Active Substance: BOTULINUM TOXIN TYPE A
  25. BOTULINUM TOXIN TYPE A [Suspect]
     Active Substance: BOTULINUM TOXIN TYPE A
  26. CAFFEINE CITRATE [Concomitant]
     Active Substance: CAFFEINE CITRATE
     Indication: Product used for unknown indication
  27. CEFUROXIME SODIUM [Concomitant]
     Active Substance: CEFUROXIME SODIUM
     Indication: Product used for unknown indication
  28. CEPHALEXIN [Concomitant]
     Active Substance: CEPHALEXIN
     Indication: Product used for unknown indication
  29. CIPROFLOXACIN HYDROCHLORIDE [Suspect]
     Active Substance: CIPROFLOXACIN HYDROCHLORIDE
     Indication: Migraine
  30. CIPROFLOXACIN HYDROCHLORIDE [Suspect]
     Active Substance: CIPROFLOXACIN HYDROCHLORIDE
  31. CLARITHROMYCIN [Suspect]
     Active Substance: CLARITHROMYCIN
     Indication: Product used for unknown indication
     Route: 065
  32. CODEINE [Suspect]
     Active Substance: CODEINE
     Indication: Migraine
     Route: 065
  33. DANAZOL [Concomitant]
     Active Substance: DANAZOL
     Indication: Product used for unknown indication
  34. CYMBALTA [Concomitant]
     Active Substance: DULOXETINE HYDROCHLORIDE
     Indication: Product used for unknown indication
  35. HYDROMORPHONE [Suspect]
     Active Substance: HYDROMORPHONE
     Indication: Migraine
     Route: 065
  36. HYDROMORPHONE [Suspect]
     Active Substance: HYDROMORPHONE
  37. HYDROMORPHONE [Suspect]
     Active Substance: HYDROMORPHONE
  38. HYDROMORPHONE [Suspect]
     Active Substance: HYDROMORPHONE
  39. HYDROMORPHONE [Suspect]
     Active Substance: HYDROMORPHONE
  40. HYDROMORPHONE [Suspect]
     Active Substance: HYDROMORPHONE
  41. HYDROMORPHONE [Suspect]
     Active Substance: HYDROMORPHONE
  42. HYDROMORPHONE [Suspect]
     Active Substance: HYDROMORPHONE
  43. HYDROMORPHONE [Suspect]
     Active Substance: HYDROMORPHONE
  44. HYDROMORPHONE [Suspect]
     Active Substance: HYDROMORPHONE
  45. HYDROMORPHONE [Suspect]
     Active Substance: HYDROMORPHONE
  46. INDOMETHACIN [Suspect]
     Active Substance: INDOMETHACIN
     Indication: Migraine
  47. MACROBID [Concomitant]
     Active Substance: NITROFURANTOIN\NITROFURANTOIN MONOHYDRATE
     Indication: Product used for unknown indication
  48. POLYETHYLENE GLYCOLS [Concomitant]
     Active Substance: POLYETHYLENE GLYCOLS
     Indication: Product used for unknown indication
  49. METOCLOPRAMIDE [Suspect]
     Active Substance: METOCLOPRAMIDE
     Indication: Migraine
     Route: 065
  50. METOCLOPRAMIDE [Concomitant]
     Active Substance: METOCLOPRAMIDE
     Indication: Product used for unknown indication
  51. METRONIDAZOLE [Concomitant]
     Active Substance: METRONIDAZOLE
     Indication: Product used for unknown indication
  52. NAPROXEN [Concomitant]
     Active Substance: NAPROXEN
     Indication: Product used for unknown indication
  53. OSELTAMIVIR [Concomitant]
     Active Substance: OSELTAMIVIR
     Indication: Product used for unknown indication
  54. PANTOPRAZOLE SODIUM [Concomitant]
     Active Substance: PANTOPRAZOLE SODIUM
     Indication: Product used for unknown indication
  55. AZITHROMYCIN [Suspect]
     Active Substance: AZITHROMYCIN
     Indication: Product used for unknown indication
     Route: 065
  56. AZITHROMYCIN [Suspect]
     Active Substance: AZITHROMYCIN
     Indication: Migraine
  57. PREDNISONE [Suspect]
     Active Substance: PREDNISONE
     Route: 065
  58. PROPRANOLOL [Suspect]
     Active Substance: PROPRANOLOL HYDROCHLORIDE
     Indication: Migraine
     Route: 065
  59. RABEPRAZOLE [Suspect]
     Active Substance: RABEPRAZOLE
     Indication: Migraine
     Route: 065
  60. RABEPRAZOLE [Suspect]
     Active Substance: RABEPRAZOLE
  61. RABEPRAZOLE [Suspect]
     Active Substance: RABEPRAZOLE
  62. RABEPRAZOLE [Suspect]
     Active Substance: RABEPRAZOLE
  63. RABEPRAZOLE [Suspect]
     Active Substance: RABEPRAZOLE
  64. RABEPRAZOLE [Suspect]
     Active Substance: RABEPRAZOLE
  65. RABEPRAZOLE [Suspect]
     Active Substance: RABEPRAZOLE
  66. RABEPRAZOLE [Suspect]
     Active Substance: RABEPRAZOLE
  67. RABEPRAZOLE [Suspect]
     Active Substance: RABEPRAZOLE
  68. RABEPRAZOLE [Suspect]
     Active Substance: RABEPRAZOLE
  69. RABEPRAZOLE [Suspect]
     Active Substance: RABEPRAZOLE
  70. RABEPRAZOLE [Suspect]
     Active Substance: RABEPRAZOLE
  71. RABEPRAZOLE [Suspect]
     Active Substance: RABEPRAZOLE
  72. RABEPRAZOLE [Suspect]
     Active Substance: RABEPRAZOLE
  73. RABEPRAZOLE [Suspect]
     Active Substance: RABEPRAZOLE
  74. RABEPRAZOLE [Suspect]
     Active Substance: RABEPRAZOLE
  75. RABEPRAZOLE [Suspect]
     Active Substance: RABEPRAZOLE
  76. RABEPRAZOLE [Suspect]
     Active Substance: RABEPRAZOLE
  77. RABEPRAZOLE [Suspect]
     Active Substance: RABEPRAZOLE
  78. RIZATRIPTAN BENZOATE [Suspect]
     Active Substance: RIZATRIPTAN BENZOATE
     Indication: Product used for unknown indication
     Route: 065
  79. RIZATRIPTAN BENZOATE [Suspect]
     Active Substance: RIZATRIPTAN BENZOATE
     Dosage: 1.0 DAYS
  80. ALBUTEROL [Suspect]
     Active Substance: ALBUTEROL
     Indication: Product used for unknown indication
     Dosage: 1.0 DAYS
     Route: 065
  81. ALBUTEROL [Suspect]
     Active Substance: ALBUTEROL
  82. SCOPOLAMINE HYDROBROMIDE [Suspect]
     Active Substance: SCOPOLAMINE HYDROBROMIDE
     Indication: Migraine
     Route: 065
  83. SERTRALINE HYDROCHLORIDE [Suspect]
     Active Substance: SERTRALINE HYDROCHLORIDE
     Indication: Migraine
     Route: 065
  84. SULFATRIM [Concomitant]
     Active Substance: SULFAMETHOXAZOLE\TRIMETHOPRIM
     Indication: Product used for unknown indication
  85. SUMATRIPTAN SUCCINATE [Suspect]
     Active Substance: SUMATRIPTAN SUCCINATE
     Indication: Migraine
     Route: 065
  86. TOPIRAMATE [Suspect]
     Active Substance: TOPIRAMATE
     Indication: Migraine
     Route: 065
  87. TRAMADOL HYDROCHLORIDE [Suspect]
     Active Substance: TRAMADOL HYDROCHLORIDE
     Indication: Product used for unknown indication
     Route: 065
  88. TRIMETHOPRIM [Suspect]
     Active Substance: TRIMETHOPRIM
     Indication: Product used for unknown indication
     Route: 065
  89. VENLAFAXINE HYDROCHLORIDE [Suspect]
     Active Substance: VENLAFAXINE HYDROCHLORIDE
     Indication: Product used for unknown indication
     Route: 065
  90. ZOLMITRIPTAN [Suspect]
     Active Substance: ZOLMITRIPTAN
     Indication: Product used for unknown indication
     Route: 065
  91. ZOPICLONE [Suspect]
     Active Substance: ZOPICLONE
     Indication: Migraine
     Dosage: 58.0 DAYS
     Route: 065
  92. ZOPICLONE [Suspect]
     Active Substance: ZOPICLONE
     Dosage: 47.0 DAYS
  93. ZOPICLONE [Suspect]
     Active Substance: ZOPICLONE
     Dosage: 59.0 DAYS
  94. ZOPICLONE [Suspect]
     Active Substance: ZOPICLONE
     Dosage: 73.0 DAYS
  95. ZOPICLONE [Suspect]
     Active Substance: ZOPICLONE
     Dosage: 94.0 DAYS
  96. ZOPICLONE [Suspect]
     Active Substance: ZOPICLONE
     Dosage: 59.0 DAYS
  97. ZOPICLONE [Suspect]
     Active Substance: ZOPICLONE
     Dosage: 56.0 DAYS
  98. ZOPICLONE [Suspect]
     Active Substance: ZOPICLONE
     Dosage: 1.0 DAYS
  99. ZOPICLONE [Suspect]
     Active Substance: ZOPICLONE
     Dosage: 141.0 DAYS
  100. ZOPICLONE [Suspect]
     Active Substance: ZOPICLONE
     Dosage: 62.0 DAYS
  101. ZOPICLONE [Suspect]
     Active Substance: ZOPICLONE
     Dosage: 83.0 DAYS
  102. ZOPICLONE [Suspect]
     Active Substance: ZOPICLONE
  103. ZOPICLONE [Suspect]
     Active Substance: ZOPICLONE
     Dosage: 56.0 DAYS
  104. ZOPICLONE [Suspect]
     Active Substance: ZOPICLONE
     Dosage: 53.0 DAYS
  105. ZOPICLONE [Suspect]
     Active Substance: ZOPICLONE
     Dosage: 45.0 DAYS
  106. ZOPICLONE [Suspect]
     Active Substance: ZOPICLONE
     Dosage: 62.0 DAYS
  107. ZOPICLONE [Suspect]
     Active Substance: ZOPICLONE
     Dosage: 67.0 DAYS
  108. ZOPICLONE [Suspect]
     Active Substance: ZOPICLONE
     Dosage: 52.0 DAYS
  109. ZOPICLONE [Suspect]
     Active Substance: ZOPICLONE
     Dosage: 37.0 DAYS
  110. ZOPICLONE [Suspect]
     Active Substance: ZOPICLONE
     Dosage: 1.0 DAYS
  111. ZOPICLONE [Suspect]
     Active Substance: ZOPICLONE
     Dosage: 61.0 DAYS
  112. ZOPICLONE [Suspect]
     Active Substance: ZOPICLONE
     Dosage: 55.0 DAYS

REACTIONS (9)
  - Angioedema [Unknown]
  - Dysphonia [Unknown]
  - Drug intolerance [Unknown]
  - Drug ineffective for unapproved indication [Unknown]
  - Swelling face [Unknown]
  - Headache [Unknown]
  - Swollen tongue [Unknown]
  - Off label use [Unknown]
  - Hypersensitivity [Unknown]
